FAERS Safety Report 20335228 (Version 4)
Quarter: 2022Q2

REPORT INFORMATION
  Report Type: Other
  Country: KR (occurrence: None)
  Receive Date: 20220114
  Receipt Date: 20220527
  Transmission Date: 20220720
  Serious: Yes (Other)
  Sender: FDA-Public Use
  Company Number: KR-ROCHE-2998143

PATIENT
  Age: 52 Year
  Sex: Male
  Weight: 90.9 kg

DRUGS (24)
  1. ATEZOLIZUMAB [Suspect]
     Active Substance: ATEZOLIZUMAB
     Indication: Hepatocellular carcinoma
     Dosage: SUBSEQUENT DOSES ON 27/JAN/2022, 17/FEB/2022, 10/MAR/2022, 31/MAR/2022, 21/APR/2022 AND 16/MAY/2022.
     Route: 042
     Dates: start: 20211207
  2. BEVACIZUMAB [Suspect]
     Active Substance: BEVACIZUMAB
     Indication: Hepatocellular carcinoma
     Dosage: SUBSEQUENT DOSES ON 27/JAN/2022, 17/FEB/2022, 10/MAR/2022 , 31/MAR/2022, 21/APR/2022 AND 16/MAY/2022
     Route: 042
     Dates: start: 20211207
  3. FURIX (SOUTH KOREA) [Concomitant]
     Indication: Ascites
     Dates: start: 20211201
  4. ALDACTONE [Concomitant]
     Active Substance: SPIRONOLACTONE
     Indication: Ascites
     Dates: start: 20211201
  5. BARACLUDE [Concomitant]
     Active Substance: ENTECAVIR
     Indication: Hepatitis B
     Dates: start: 2021
  6. ASPIRIN [Concomitant]
     Active Substance: ASPIRIN
     Indication: Myocardial infarction
  7. NICORANDIL [Concomitant]
     Active Substance: NICORANDIL
     Indication: Myocardial infarction
  8. CARVEDILOL [Concomitant]
     Active Substance: CARVEDILOL
     Indication: Myocardial infarction
  9. LODIEN [Concomitant]
     Indication: Myocardial infarction
  10. CANTABELL [Concomitant]
     Indication: Hypertension
     Dosage: 16/5MG
  11. EZETIMIBE\ROSUVASTATIN [Concomitant]
     Active Substance: EZETIMIBE\ROSUVASTATIN
     Indication: Hyperlipidaemia
     Dosage: 10/5M
  12. TERIPIN [Concomitant]
  13. PANTOPRAZOLE SODIUM [Concomitant]
     Active Substance: PANTOPRAZOLE SODIUM
  14. LASIX [Concomitant]
     Active Substance: FUROSEMIDE
  15. MACHKHAN [Concomitant]
  16. NEXIUM [Concomitant]
     Active Substance: ESOMEPRAZOLE MAGNESIUM
  17. TRAMADOL HYDROCHLORIDE [Concomitant]
     Active Substance: TRAMADOL HYDROCHLORIDE
     Dates: start: 20211219, end: 20211219
  18. ACETAMINOPHEN\TRAMADOL [Concomitant]
     Active Substance: ACETAMINOPHEN\TRAMADOL
     Dates: start: 20211219, end: 20211219
  19. ALDACTONE [Concomitant]
     Active Substance: SPIRONOLACTONE
     Dates: start: 20211220
  20. MAGNESIUM HYDROXIDE [Concomitant]
     Active Substance: MAGNESIUM HYDROXIDE
     Dates: start: 20211221, end: 20211221
  21. URSODIOL [Concomitant]
     Active Substance: URSODIOL
     Dates: start: 20220125
  22. PENNEL (SOUTH KOREA) [Concomitant]
     Dates: start: 20220125
  23. PENIRAMIN [Concomitant]
     Dates: start: 20220127
  24. POLYETHYLENE GLYCOL 4000 [Concomitant]
     Active Substance: POLYETHYLENE GLYCOL 4000
     Dates: start: 20220211

REACTIONS (8)
  - Melaena [Recovered/Resolved]
  - Hypoalbuminaemia [Recovering/Resolving]
  - Gastric ulcer [Recovering/Resolving]
  - Ascites [Recovering/Resolving]
  - Constipation [Recovering/Resolving]
  - Urticaria [Recovered/Resolved]
  - Nausea [Recovered/Resolved]
  - Epistaxis [Recovered/Resolved]

NARRATIVE: CASE EVENT DATE: 20211213
